FAERS Safety Report 6578113-8 (Version None)
Quarter: 2010Q1

REPORT INFORMATION
  Report Type: 
  Country: None (occurrence: None)
  Receive Date: 20100211
  Receipt Date: 20100121
  Transmission Date: 20100710
  Serious: Yes (Other)
  Sender: FDA-Public Use
  Company Number: ES-SANOFI-AVENTIS-2010SA004374

PATIENT
  Age: 80 Year
  Sex: Male

DRUGS (2)
  1. LEUPRORELIN ACETATE [Suspect]
     Route: 058
  2. LEUPRORELIN ACETATE [Suspect]
     Route: 058

REACTIONS (1)
  - DERMATITIS CONTACT [None]
